FAERS Safety Report 6817733-X (Version None)
Quarter: 2010Q3

REPORT INFORMATION
  Report Type: 
  Country: None (occurrence: None)
  Receive Date: 20100706
  Receipt Date: 20100625
  Transmission Date: 20110219
  Serious: Yes (Other)
  Sender: FDA-Public Use
  Company Number: NL-PFIZER INC-2010079315

PATIENT
  Age: 66 Year
  Sex: Male

DRUGS (1)
  1. XALATAN [Suspect]
     Dosage: UNK
     Dates: start: 20060101

REACTIONS (7)
  - DRUG INEFFECTIVE [None]
  - DRY EYE [None]
  - EYE IRRITATION [None]
  - EYE PAIN [None]
  - INTRAOCULAR PRESSURE INCREASED [None]
  - IRIS HYPOPIGMENTATION [None]
  - OCULAR HYPERAEMIA [None]
